FAERS Safety Report 23802419 (Version 1)
Quarter: 2024Q2

REPORT INFORMATION
  Report Type: Spontaneous
  Country: DK (occurrence: DK)
  Receive Date: 20240501
  Receipt Date: 20240501
  Transmission Date: 20240716
  Serious: Yes (Other)
  Sender: FDA-Public Use
  Company Number: DK-ITM MEDICAL ISOTOPS GMBH-ITMDK2024000159

PATIENT
  Age: 64 Year
  Sex: Female

DRUGS (5)
  1. LUTETIUM OXODOTREOTIDE LU-177 [Suspect]
     Active Substance: LUTETIUM OXODOTREOTIDE LU-177
     Indication: Phaeochromocytoma
     Dosage: 7.6 GBQ, CYCLIC
     Route: 065
  2. LUTETIUM OXODOTREOTIDE LU-177 [Suspect]
     Active Substance: LUTETIUM OXODOTREOTIDE LU-177
     Indication: Metastases to lymph nodes
  3. LUTETIUM CHLORIDE LU-177 [Suspect]
     Active Substance: LUTETIUM CHLORIDE LU-177
     Indication: Radioisotope therapy
     Dosage: 7600 MBQ, CYCLIC
     Route: 050
  4. EDOTREOTIDE\LUTETIUM LU-177 [Suspect]
     Active Substance: EDOTREOTIDE\LUTETIUM LU-177
     Indication: Phaeochromocytoma
     Dosage: CYCLE 1, 7.6GBQ
     Route: 065
  5. EDOTREOTIDE\LUTETIUM LU-177 [Suspect]
     Active Substance: EDOTREOTIDE\LUTETIUM LU-177
     Indication: Metastases to lymph nodes

REACTIONS (1)
  - Myelosuppression [Unknown]
